FAERS Safety Report 11275106 (Version 2)
Quarter: 2015Q3

REPORT INFORMATION
  Report Type: Spontaneous
  Country: NL (occurrence: NL)
  Receive Date: 20150714
  Receipt Date: 20150918
  Transmission Date: 20151125
  Serious: Yes (Other)
  Sender: FDA-Public Use
  Company Number: NL-H14001-15-01175

PATIENT
  Age: 57 Year
  Sex: Female

DRUGS (1)
  1. CEFTRIAXONE. [Suspect]
     Active Substance: CEFTRIAXONE
     Indication: NEUROBORRELIOSIS
     Route: 065

REACTIONS (5)
  - Shock [Recovered/Resolved]
  - Dialysis [None]
  - Haemolytic anaemia [Recovered/Resolved]
  - Multi-organ failure [Recovered/Resolved]
  - Acute kidney injury [Recovered/Resolved]
